FAERS Safety Report 6047034-1 (Version None)
Quarter: 2009Q1

REPORT INFORMATION
  Report Type: 
  Country: None (occurrence: None)
  Receive Date: 20090122
  Receipt Date: 20090112
  Transmission Date: 20090719
  Serious: Yes (Death, Hospitalization, Disabling)
  Sender: FDA-Public Use
  Company Number: SE-ELI_LILLY_AND_COMPANY-SE200706001992

PATIENT
  Sex: Female
  Weight: 61.3 kg

DRUGS (14)
  1. TERIPARATIDE [Suspect]
     Indication: OSTEOPOROSIS POSTMENOPAUSAL
     Dosage: 20 UG, DAILY (1/D)
     Route: 065
     Dates: start: 20070314, end: 20071212
  2. TROMBYL [Concomitant]
     Dosage: 75 MG, EACH MORNING
     Route: 065
  3. PLENDIL [Concomitant]
     Dosage: 7.5 MG, EACH MORNING
     Route: 065
  4. SALURES [Concomitant]
     Dosage: 5 MG, EACH MORNING
     Route: 065
  5. KALCIPOS-D [Concomitant]
     Dosage: UNK UNK, EACH MORNING
     Route: 065
  6. ZOLPIDEM TARTRATE [Concomitant]
     Dosage: 10 MG, EACH EVENING
     Route: 065
  7. KININ [Concomitant]
     Dosage: 100 MG, EACH EVENING
     Route: 065
  8. SIFROL [Concomitant]
     Dosage: 0.09 MG, EACH EVENING
     Route: 065
  9. LEVOTHYROXINE SODIUM [Concomitant]
     Dosage: 50 UG, 5/W
     Route: 065
  10. VAGIFEM [Concomitant]
     Dosage: 25 UG, WEEKLY (1/W)
     Route: 067
  11. DURAGESIC-100 [Concomitant]
     Dosage: 25 UG, EVERY THIRD DAY
     Route: 062
  12. GLUCOSAMIN                         /00943604/ [Concomitant]
     Dosage: 400 MG, 3/D
     Route: 065
  13. MORFIN [Concomitant]
     Dosage: 10 MG, 0.5-1 ML AS NEEDED
     Route: 058
  14. OXYCODONE HCL [Concomitant]
     Dosage: 5 MG, AS NEEDED
     Route: 065

REACTIONS (3)
  - CHRONIC LYMPHOCYTIC LEUKAEMIA [None]
  - LYMPHOMA [None]
  - SPINAL COMPRESSION FRACTURE [None]
